FAERS Safety Report 7713857-3 (Version None)
Quarter: 2011Q3

REPORT INFORMATION
  Report Type: 
  Country: None (occurrence: None)
  Receive Date: 20110826
  Receipt Date: 20110817
  Transmission Date: 20111222
  Serious: Yes (Hospitalization, Disabling, Other)
  Sender: FDA-Public Use
  Company Number: US-ELI_LILLY_AND_COMPANY-US201108005724

PATIENT
  Age: 87 Year
  Sex: Male

DRUGS (5)
  1. NITROGLYCERIN [Concomitant]
     Dosage: UNK
  2. HUMULIN 70/30 [Suspect]
     Dosage: UNK, PRN
  3. SOMA [Concomitant]
     Dosage: UNK
  4. HUMULIN 70/30 [Suspect]
     Indication: DIABETES MELLITUS
     Dosage: UNK, PRN
  5. NOVOLIN 70/30 [Concomitant]

REACTIONS (14)
  - BONE DISORDER [None]
  - DIZZINESS [None]
  - BLOOD GLUCOSE DECREASED [None]
  - APPENDICECTOMY [None]
  - OVERDOSE [None]
  - CYST [None]
  - GAIT DISTURBANCE [None]
  - KNEE ARTHROPLASTY [None]
  - SPINAL FUSION SURGERY [None]
  - MUSCLE SPASMS [None]
  - ARTHRITIS INFECTIVE [None]
  - PROCEDURAL COMPLICATION [None]
  - BLOOD GLUCOSE INCREASED [None]
  - MUSCLE DISORDER [None]
